FAERS Safety Report 13795426 (Version 4)
Quarter: 2017Q4

REPORT INFORMATION
  Report Type: Not Available
  Country: US (occurrence: US)
  Receive Date: 20170726
  Receipt Date: 20171212
  Transmission Date: 20180320
  Serious: Yes (Hospitalization, Other)
  Sender: FDA-Public Use
  Company Number: US-NEUROCRINE BIOSCIENCES INC.-2017NBI00449

PATIENT
  Age: 59 Year
  Sex: Female

DRUGS (14)
  1. CYMBALTA [Concomitant]
     Active Substance: DULOXETINE HYDROCHLORIDE
     Indication: DEPRESSION
     Dates: start: 2002
  2. HYDROCODONE [Concomitant]
     Active Substance: HYDROCODONE
  3. COGENTIN [Suspect]
     Active Substance: BENZTROPINE MESYLATE
     Indication: PRODUCT USED FOR UNKNOWN INDICATION
     Route: 042
  4. SINGULAIR [Concomitant]
     Active Substance: MONTELUKAST SODIUM
  5. ADVAIR HFA [Concomitant]
     Active Substance: FLUTICASONE PROPIONATE\SALMETEROL XINAFOATE
  6. STOOL SOFTENER (DOCUSATE) [Concomitant]
     Active Substance: DOCUSATE
  7. TETRABENAZINE. [Concomitant]
     Active Substance: TETRABENAZINE
  8. INGREZZA [Suspect]
     Active Substance: VALBENAZINE
     Route: 048
     Dates: start: 20170616, end: 20170731
  9. ALBUTEROL. [Concomitant]
     Active Substance: ALBUTEROL
  10. TRAZODONE [Concomitant]
     Active Substance: TRAZODONE HYDROCHLORIDE
     Indication: INSOMNIA
     Dates: start: 201705
  11. INGREZZA [Suspect]
     Active Substance: VALBENAZINE
     Indication: TARDIVE DYSKINESIA
     Route: 048
     Dates: start: 20170616, end: 20170623
  12. KLONOPIN [Concomitant]
     Active Substance: CLONAZEPAM
     Dates: start: 201705
  13. NITROFURANTOIN. [Concomitant]
     Active Substance: NITROFURANTOIN
  14. SENNA [Concomitant]
     Active Substance: SENNA LEAF\SENNOSIDES\SENNOSIDES A AND B

REACTIONS (14)
  - Gait inability [Not Recovered/Not Resolved]
  - Skin abrasion [Recovering/Resolving]
  - Mastication disorder [Recovered/Resolved]
  - Dizziness [Unknown]
  - Dysphagia [Recovered/Resolved]
  - Hallucination [Recovering/Resolving]
  - Fall [Unknown]
  - Dystonia [Not Recovered/Not Resolved]
  - Speech disorder [Unknown]
  - Dry mouth [Unknown]
  - Pain in jaw [Recovered/Resolved]
  - Drug effect incomplete [None]
  - Headache [Unknown]
  - Confusional state [Recovering/Resolving]

NARRATIVE: CASE EVENT DATE: 2017
